FAERS Safety Report 7270282-X (Version None)
Quarter: 2011Q1

REPORT INFORMATION
  Report Type: 
  Country: None (occurrence: None)
  Receive Date: 20110202
  Receipt Date: 20110124
  Transmission Date: 20110831
  Serious: Yes (Other)
  Sender: FDA-Public Use
  Company Number: US-KINGPHARMUSA00001-K201100100

PATIENT
  Sex: Female
  Weight: 61.224 kg

DRUGS (3)
  1. SEPTRA [Suspect]
     Indication: ANTIBIOTIC THERAPY
     Dosage: 800/160 MG DAILY
     Route: 048
     Dates: start: 20101201, end: 20101201
  2. SEPTRA [Suspect]
     Dosage: 800/160 MG DAILY
     Route: 048
     Dates: start: 20110101, end: 20110101
  3. CONTRACEPTIVES [Concomitant]
     Indication: CONTRACEPTION
     Dosage: 1 DF, QD
     Route: 048

REACTIONS (6)
  - VISION BLURRED [None]
  - PAIN [None]
  - EYE PAIN [None]
  - BLINDNESS TRANSIENT [None]
  - IRITIS [None]
  - OCULAR HYPERAEMIA [None]
